FAERS Safety Report 16782954 (Version 2)
Quarter: 2019Q3

REPORT INFORMATION
  Report Type: Spontaneous
  Country: US (occurrence: US)
  Receive Date: 20190906
  Receipt Date: 20190923
  Transmission Date: 20191005
  Serious: Yes (Other)
  Sender: FDA-Public Use
  Company Number: US-AKCEA THERAPEUTICS-2019IS001687

PATIENT

DRUGS (1)
  1. TEGSEDI [Suspect]
     Active Substance: INOTERSEN SODIUM
     Indication: HEREDITARY NEUROPATHIC AMYLOIDOSIS
     Dosage: 284 MG/ 1.5 ML, QW
     Route: 058

REACTIONS (6)
  - Urine analysis abnormal [Unknown]
  - Protein urine [Unknown]
  - Creatinine urine decreased [Unknown]
  - Pyuria [Recovering/Resolving]
  - Urine protein/creatinine ratio increased [Unknown]
  - Renal function test abnormal [Unknown]

NARRATIVE: CASE EVENT DATE: 2019
